FAERS Safety Report 7623484-4 (Version None)
Quarter: 2011Q3

REPORT INFORMATION
  Report Type: 
  Country: None (occurrence: None)
  Receive Date: 20110720
  Receipt Date: 20110712
  Transmission Date: 20111222
  Serious: Yes (Disabling)
  Sender: FDA-Public Use
  Company Number: PHHY2011GB55693

PATIENT
  Age: 73 Year
  Sex: Female
  Weight: 54.4 kg

DRUGS (9)
  1. LEVOFLOXACIN [Suspect]
     Indication: CHRONIC OBSTRUCTIVE PULMONARY DISEASE
     Dosage: 500 MG, QD
     Route: 048
     Dates: start: 20110512, end: 20110514
  2. AMITRIPTYLINE HCL [Concomitant]
     Dosage: 25 MG, UNK
  3. ALENDRONIC ACID [Concomitant]
     Indication: OSTEOPOROSIS
     Dosage: 70 MG, QW
  4. SERETIDE [Concomitant]
  5. ALBUTEROL [Concomitant]
     Indication: CHRONIC OBSTRUCTIVE PULMONARY DISEASE
  6. VENTOLIN HFA [Concomitant]
     Route: 048
  7. TIOTROPIUM BROMIDE [Concomitant]
  8. ADIPINE [Concomitant]
     Indication: DEPRESSION
     Dosage: 10 MG, BID
     Route: 048
  9. CITALOPRAM HYDROBROMIDE [Concomitant]
     Indication: DEPRESSION
     Dosage: 10 MG, QD
     Route: 048

REACTIONS (6)
  - PAIN IN EXTREMITY [None]
  - ABASIA [None]
  - TENDON RUPTURE [None]
  - WHEELCHAIR USER [None]
  - TENDONITIS [None]
  - TENDON PAIN [None]
